FAERS Safety Report 10897835 (Version 1)
Quarter: 2015Q1

REPORT INFORMATION
  Report Type: Spontaneous
  Country: FR (occurrence: FR)
  Receive Date: 20150309
  Receipt Date: 20150309
  Transmission Date: 20150721
  Serious: Yes (Hospitalization)
  Sender: FDA-Public Use
  Company Number: FR-ASTRAZENECA-2015SE20322

PATIENT
  Age: 42 Year
  Sex: Male
  Weight: 86 kg

DRUGS (6)
  1. XYLOCAINE [Suspect]
     Active Substance: LIDOCAINE HYDROCHLORIDE
     Dosage: 3MG/ML, 18 MG OF LIDOCAINE HYDROCHLORIDE (IN VOLUMA)
     Route: 058
     Dates: start: 20141217, end: 20141217
  2. XYLOCAINE [Suspect]
     Active Substance: LIDOCAINE HYDROCHLORIDE
     Dosage: 10 MG/ML, 10 MG ONCE/SINGLE ADMINISTRATION
     Route: 058
     Dates: start: 20141217, end: 20141217
  3. HYALURONATE-SODIQUE [Suspect]
     Active Substance: HYALURONATE SODIUM
     Dosage: CONTAINED 6 ML OF VOLUMA ONCE (MIX OF HYALURONIC ACID (20 MG/ML)120 MG +PHOSPAHE BUFFER)
     Route: 058
     Dates: start: 20141217, end: 20141217
  4. HYALURONATE-SODIQUE [Suspect]
     Active Substance: HYALURONATE SODIUM
     Dosage: CONTAINED 4 ML OF VOLBELLA ONCE(MIX OF HYALURONIC ACID (15 MG/ML)60 MG+PHOSPAHE BUFFER)
     Route: 058
     Dates: start: 20141217, end: 20141217
  5. XYLOCAINE [Suspect]
     Active Substance: LIDOCAINE HYDROCHLORIDE
     Dosage: 3MG/ML,12 MG OF LIDOCAINE HYDROCHLORIDE (IN VOLBELLA)
     Route: 058
     Dates: start: 20141217, end: 20141217
  6. VISTABEL [Suspect]
     Active Substance: BOTULINUM TOXIN TYPE A
     Dosage: 50 UNITS  ALLERGAN ONCE/SINGLE ADMINISTRATION
     Route: 030
     Dates: start: 20141217, end: 20141217

REACTIONS (4)
  - Headache [Not Recovered/Not Resolved]
  - Cerebral ischaemia [Not Recovered/Not Resolved]
  - Visual impairment [Not Recovered/Not Resolved]
  - Nuclear magnetic resonance imaging brain abnormal [Not Recovered/Not Resolved]

NARRATIVE: CASE EVENT DATE: 20141217
